FAERS Safety Report 6508168-8 (Version None)
Quarter: 2009Q4

REPORT INFORMATION
  Report Type: 
  Country: None (occurrence: None)
  Receive Date: 20091221
  Receipt Date: 20081229
  Transmission Date: 20100525
  Serious: No
  Sender: FDA-Public Use
  Company Number: US-ASTRAZENECA-2008UW27792

PATIENT
  Age: 82 Year
  Sex: Female

DRUGS (4)
  1. CRESTOR [Suspect]
     Indication: BLOOD CHOLESTEROL INCREASED
     Dosage: 5 MG
     Route: 048
     Dates: start: 20081126
  2. NEXIUM [Concomitant]
  3. JANUVIA [Concomitant]
  4. ANGINA MEDICATION [Concomitant]

REACTIONS (3)
  - COUGH [None]
  - DYSPEPSIA [None]
  - PAIN [None]
